FAERS Safety Report 6644487-2 (Version None)
Quarter: 2010Q1

REPORT INFORMATION
  Report Type: 
  Country: None (occurrence: None)
  Receive Date: 20100317
  Receipt Date: 20100301
  Transmission Date: 20100710
  Serious: Yes (Hospitalization)
  Sender: FDA-Public Use
  Company Number: TCI2010A00702

PATIENT
  Age: 52 Year
  Sex: Female

DRUGS (4)
  1. TAKEPRON OD TABLETS 30 (LANSOPRAZOLE) [Suspect]
     Indication: REFLUX OESOPHAGITIS
     Dosage: 30 MG (30 MG, 1 IN 1 D), PER ORAL
     Route: 048
     Dates: start: 20070308, end: 20091002
  2. NOLVADEX (TAMOFIXEN CITRATE) [Concomitant]
  3. JUVELA (TOCOPHERYL NICOTINATE) [Concomitant]
  4. KETOPROFEN [Concomitant]

REACTIONS (2)
  - CARCINOID TUMOUR OF THE STOMACH [None]
  - HYPERGASTRINAEMIA [None]
